FAERS Safety Report 11864945 (Version 2)
Quarter: 2016Q1

REPORT INFORMATION
  Report Type: Spontaneous
  Country: US (occurrence: US)
  Receive Date: 20151223
  Receipt Date: 20160114
  Transmission Date: 20160526
  Serious: No
  Sender: FDA-Public Use
  Company Number: US-PFIZER INC-2015459960

PATIENT
  Age: 69 Year
  Sex: Female
  Weight: 83.91 kg

DRUGS (3)
  1. PREMPLUS [Suspect]
     Active Substance: ESTROGENS, CONJUGATED\MEDROXYPROGESTERONE ACETATE
     Dosage: UNK
  2. PREMIA CONTINUOUS [Suspect]
     Active Substance: ESTROGENS, CONJUGATED\MEDROXYPROGESTERONE ACETATE
     Indication: MENOPAUSE
     Dosage: CONJUGATED ESTROGENS 1.625 MG/MEDROXYPROGESTERONE 2.5 MG
     Route: 048
  3. PREMPRO [Suspect]
     Active Substance: ESTROGENS, CONJUGATED\MEDROXYPROGESTERONE ACETATE
     Indication: MENOPAUSAL SYMPTOMS
     Dosage: UNK (ESTROGENS CONJUGATED 0.3 MG, MEDROXYPROGESTERONE ACETATE 1.5 MG)

REACTIONS (7)
  - Feeling jittery [Recovered/Resolved]
  - Anxiety [Unknown]
  - Wrong technique in product usage process [Unknown]
  - Psychomotor hyperactivity [Unknown]
  - Ear infection [Unknown]
  - Nervousness [Recovering/Resolving]
  - Dizziness [Unknown]

NARRATIVE: CASE EVENT DATE: 20151217
